FAERS Safety Report 18446379 (Version 1)
Quarter: 2020Q4

REPORT INFORMATION
  Report Type: Spontaneous
  Country: US (occurrence: US)
  Receive Date: 20201030
  Receipt Date: 20201030
  Transmission Date: 20210114
  Serious: Yes (Life-Threatening, Hospitalization)
  Sender: FDA-Public Use
  Company Number: US-MYLANLABS-2020M1090683

PATIENT
  Age: 60 Year
  Sex: Female

DRUGS (7)
  1. ADENOSINE. [Suspect]
     Active Substance: ADENOSINE
     Dosage: 6 MILLIGRAM
     Route: 042
  2. PREDNISONE. [Suspect]
     Active Substance: PREDNISONE
     Indication: THYROTOXIC CRISIS
     Dosage: 20 MILLIGRAM, BID
     Route: 048
  3. ADENOSINE. [Suspect]
     Active Substance: ADENOSINE
     Indication: THYROTOXIC CRISIS
     Dosage: 12 MILLIGRAM
     Route: 042
  4. DILTIAZEM. [Suspect]
     Active Substance: DILTIAZEM
     Indication: THYROTOXIC CRISIS
     Dosage: IV DRIP
     Route: 042
  5. PROPRANOLOL [Suspect]
     Active Substance: PROPRANOLOL HYDROCHLORIDE
     Indication: THYROTOXIC CRISIS
     Dosage: 60 MILLIGRAM, Q6H
     Route: 048
  6. PREDNISONE. [Suspect]
     Active Substance: PREDNISONE
     Dosage: UNK
     Route: 048
  7. PROPYLTHIOURACIL. [Suspect]
     Active Substance: PROPYLTHIOURACIL
     Indication: THYROTOXIC CRISIS
     Dosage: 150 MILLIGRAM, Q8H
     Route: 048

REACTIONS (1)
  - Treatment failure [Unknown]
